FAERS Safety Report 21493694 (Version 1)
Quarter: 2022Q4

REPORT INFORMATION
  Report Type: Spontaneous
  Country: US (occurrence: None)
  Receive Date: 20221021
  Receipt Date: 20221021
  Transmission Date: 20230113
  Serious: Yes (Disabling)
  Sender: FDA-Public Use
  Company Number: None

PATIENT
  Age: 64 Year
  Sex: Female
  Weight: 71.1 kg

DRUGS (7)
  1. LOSARTAN POTASSIUM [Suspect]
     Active Substance: LOSARTAN POTASSIUM
     Indication: Hypertension
     Dosage: FREQUENCY : DAILY;?
     Route: 048
     Dates: start: 20220607, end: 20221020
  2. LOSARTAN [Concomitant]
     Active Substance: LOSARTAN
  3. HYDROCHLOROTHIAZIDE [Concomitant]
     Active Substance: HYDROCHLOROTHIAZIDE
  4. Fluticasone Propionate Spray [Concomitant]
  5. ALLEGRA [Concomitant]
     Active Substance: FEXOFENADINE HYDROCHLORIDE
  6. VITAMIN B12 [Concomitant]
     Active Substance: CYANOCOBALAMIN
  7. Vit-D [Concomitant]

REACTIONS (16)
  - Paraesthesia [None]
  - Limb discomfort [None]
  - Back pain [None]
  - Spinal pain [None]
  - Arthralgia [None]
  - Pain in extremity [None]
  - Hypokinesia [None]
  - Impaired driving ability [None]
  - Headache [None]
  - Pain of skin [None]
  - Arthralgia [None]
  - Throat irritation [None]
  - Faeces hard [None]
  - Chest pain [None]
  - Back pain [None]
  - Central pain syndrome [None]

NARRATIVE: CASE EVENT DATE: 20221019
